FAERS Safety Report 11680427 (Version 2)
Quarter: 2015Q4

REPORT INFORMATION
  Report Type: Spontaneous
  Country: US (occurrence: US)
  Receive Date: 20151027
  Receipt Date: 20151104
  Transmission Date: 20160304
  Serious: No
  Sender: FDA-Public Use
  Company Number: US-ELI_LILLY_AND_COMPANY-US201009001304

PATIENT
  Sex: Female

DRUGS (4)
  1. FORTEO [Suspect]
     Active Substance: TERIPARATIDE
     Indication: OSTEOPOROSIS
     Dosage: 20 UG, QD
  2. COUMADIN [Concomitant]
     Active Substance: WARFARIN SODIUM
  3. POTASSIUM [Concomitant]
     Active Substance: POTASSIUM
  4. FORTEO [Suspect]
     Active Substance: TERIPARATIDE
     Dosage: 20 UG, QD

REACTIONS (8)
  - Hypoacusis [Unknown]
  - Asthenia [Unknown]
  - Drug ineffective [Unknown]
  - Memory impairment [Unknown]
  - Daydreaming [Unknown]
  - Accident [Recovered/Resolved]
  - Bone disorder [Unknown]
  - Back pain [Unknown]
